FAERS Safety Report 25005238 (Version 1)
Quarter: 2025Q1

REPORT INFORMATION
  Report Type: Spontaneous
  Country: US (occurrence: None)
  Receive Date: 20250224
  Receipt Date: 20250224
  Transmission Date: 20250409
  Serious: No
  Sender: FDA-CTU
  Company Number: None

PATIENT
  Age: 68 Year
  Sex: Female

DRUGS (2)
  1. MIEBO [Suspect]
     Active Substance: PERFLUOROHEXYLOCTANE
     Dosage: 1 GT DROP(S) 4 TIMES A DAY OPHTHALMIC ?
     Route: 047
     Dates: start: 20250219, end: 20250221
  2. MIEBO [Concomitant]
     Active Substance: PERFLUOROHEXYLOCTANE
     Dates: start: 20250219, end: 20250221

REACTIONS (1)
  - Eye swelling [None]

NARRATIVE: CASE EVENT DATE: 20250219
